FAERS Safety Report 7346969-7 (Version None)
Quarter: 2011Q1

REPORT INFORMATION
  Report Type: 
  Country: None (occurrence: None)
  Receive Date: 20110311
  Receipt Date: 20110225
  Transmission Date: 20110831
  Serious: Yes (Other)
  Sender: FDA-Public Use
  Company Number: PHHY2010BR51386

PATIENT
  Sex: Male

DRUGS (3)
  1. NATAL [Concomitant]
     Dosage: 2 MG, UNK
  2. RIVOTRIL [Suspect]
     Dosage: 2 MG, UNK
  3. DIOVAN HCT [Suspect]
     Dosage: 160/12.5 MG

REACTIONS (5)
  - HYPERTENSION [None]
  - NECK PAIN [None]
  - INSOMNIA [None]
  - PALPITATIONS [None]
  - CARDIOMEGALY [None]
